APPROVED DRUG PRODUCT: LAMOTRIGINE
Active Ingredient: LAMOTRIGINE
Strength: 25MG
Dosage Form/Route: TABLET;ORAL
Application: A077392 | Product #001
Applicant: ROXANE LABORATORIES INC
Approved: Jan 27, 2009 | RLD: No | RS: No | Type: DISCN